FAERS Safety Report 4974673-9 (Version None)
Quarter: 2006Q2

REPORT INFORMATION
  Report Type: 
  Country: None (occurrence: None)
  Receive Date: 20060410
  Receipt Date: 20060329
  Transmission Date: 20061013
  Serious: Yes (Death)
  Sender: FDA-Public Use
  Company Number: 13853

PATIENT
  Age: 45 Year
  Sex: Male

DRUGS (2)
  1. ATRACURIUM [Suspect]
     Indication: COMPLETED SUICIDE
  2. VENLAFAXINE HCL [Concomitant]

REACTIONS (2)
  - COMPLETED SUICIDE [None]
  - INTENTIONAL OVERDOSE [None]
